FAERS Safety Report 11186719 (Version 1)
Quarter: 2015Q2

REPORT INFORMATION
  Report Type: Spontaneous
  Country: ES (occurrence: ES)
  Receive Date: 20150613
  Receipt Date: 20150613
  Transmission Date: 20150821
  Serious: Yes (Other)
  Sender: FDA-Public Use
  Company Number: ES-TEVA-568865ISR

PATIENT
  Age: 74 Year
  Sex: Female
  Weight: 60.5 kg

DRUGS (8)
  1. AZILECT [Suspect]
     Active Substance: RASAGILINE MESYLATE
     Indication: PARKINSON^S DISEASE
     Route: 048
     Dates: start: 20150416, end: 20150501
  2. EUTIROX [Concomitant]
     Active Substance: LEVOTHYROXINE SODIUM
  3. MADOPAR (200MG/50MG) [Concomitant]
     Dosage: 1 DOSAGE FORM =200MG OF LEVODOPA + 50MG OF BENSERAZIDE
  4. VENLAFAXINE [Concomitant]
     Active Substance: VENLAFAXINE HYDROCHLORIDE
  5. FUROSEMIDE. [Concomitant]
     Active Substance: FUROSEMIDE
  6. OMEPRAZOLE. [Concomitant]
     Active Substance: OMEPRAZOLE
  7. CALCIUM [Concomitant]
     Active Substance: CALCIUM
  8. NEUPRO / (1 MG/24 H) [Concomitant]
     Dosage: 1 MILLIGRAM DAILY;

REACTIONS (2)
  - Syncope [Recovered/Resolved]
  - Sleep disorder [Recovered/Resolved]

NARRATIVE: CASE EVENT DATE: 20150422
